FAERS Safety Report 11176672 (Version 1)
Quarter: 2015Q2

REPORT INFORMATION
  Report Type: Spontaneous
  Country: SE (occurrence: SE)
  Receive Date: 20150610
  Receipt Date: 20150610
  Transmission Date: 20150821
  Serious: Yes (Other)
  Sender: FDA-Public Use
  Company Number: SE-AMGEN-SWESP2015055922

PATIENT
  Age: 55 Year
  Sex: Female

DRUGS (2)
  1. TROMBYL [Concomitant]
     Active Substance: ASPIRIN
     Dosage: UNK
  2. ENBREL [Suspect]
     Active Substance: ETANERCEPT
     Indication: PSORIATIC ARTHROPATHY
     Dosage: 50 MG, WEEKLY
     Route: 065
     Dates: start: 20140415, end: 20150417

REACTIONS (1)
  - Liposarcoma [Not Recovered/Not Resolved]
